FAERS Safety Report 4931881-0 (Version None)
Quarter: 2006Q1

REPORT INFORMATION
  Report Type: 
  Country: None (occurrence: None)
  Receive Date: 20060303
  Receipt Date: 20050624
  Transmission Date: 20060701
  Serious: Yes (Hospitalization, Disabling)
  Sender: FDA-Public Use
  Company Number: US-MERCK-0506USA03570

PATIENT
  Age: 45 Year
  Sex: Female
  Weight: 82 kg

DRUGS (2)
  1. VIOXX [Suspect]
     Indication: BACK PAIN
     Route: 048
     Dates: start: 20010101, end: 20030101
  2. VIOXX [Suspect]
     Indication: ARTHRALGIA
     Route: 048
     Dates: start: 20010101, end: 20030101

REACTIONS (7)
  - CARDIAC FAILURE CONGESTIVE [None]
  - DEPRESSION [None]
  - DYSPNOEA [None]
  - FLUID RETENTION [None]
  - MITRAL VALVE INCOMPETENCE [None]
  - NERVE INJURY [None]
  - PAIN IN EXTREMITY [None]
